FAERS Safety Report 23113719 (Version 1)
Quarter: 2023Q4

REPORT INFORMATION
  Report Type: Spontaneous
  Country: RU (occurrence: None)
  Receive Date: 20231027
  Receipt Date: 20231027
  Transmission Date: 20240110
  Serious: Yes (Death, Other)
  Sender: FDA-Public Use
  Company Number: RU-ROCHE-3442109

PATIENT
  Age: 46 Year
  Sex: Male

DRUGS (2)
  1. VEMURAFENIB [Suspect]
     Active Substance: VEMURAFENIB
     Indication: Metastatic malignant melanoma
     Route: 065
  2. COBIMETINIB [Suspect]
     Active Substance: COBIMETINIB
     Indication: Metastatic malignant melanoma
     Route: 065

REACTIONS (6)
  - Death [Fatal]
  - Epilepsy [Unknown]
  - Cerebral haemorrhage [Unknown]
  - Oedema [Unknown]
  - Brain dislocation syndrome [Unknown]
  - Brain injury [Unknown]

NARRATIVE: CASE EVENT DATE: 20230714
